FAERS Safety Report 7730352-6 (Version None)
Quarter: 2011Q3

REPORT INFORMATION
  Report Type: 
  Country: None (occurrence: None)
  Receive Date: 20110901
  Receipt Date: 20110901
  Transmission Date: 20111222
  Serious: Yes (Disabling, Other)
  Sender: FDA-Public Use
  Company Number: None

PATIENT
  Sex: Female
  Weight: 60.3284 kg

DRUGS (1)
  1. RECLAST [Suspect]
     Indication: OSTEOPOROSIS
     Dosage: 5 MG YEARLY IV
     Route: 042
     Dates: start: 20110624

REACTIONS (6)
  - ARTHRALGIA [None]
  - SCIATICA [None]
  - BONE PAIN [None]
  - ABASIA [None]
  - HEADACHE [None]
  - PAIN IN EXTREMITY [None]
